FAERS Safety Report 20054589 (Version 19)
Quarter: 2023Q1

REPORT INFORMATION
  Report Type: Report from Study
  Country: CA (occurrence: CA)
  Receive Date: 20211110
  Receipt Date: 20230220
  Transmission Date: 20230417
  Serious: Yes (Other)
  Sender: FDA-Public Use
  Company Number: CA-OTSUKA-2021_014238

PATIENT
  Age: 79 Year
  Sex: Female

DRUGS (1)
  1. CEDAZURIDINE\DECITABINE [Suspect]
     Active Substance: CEDAZURIDINE\DECITABINE
     Indication: Myelodysplastic syndrome
     Dosage: (35 MG OF DECITABINE AND 100 MG OF CEDAZURIDINE), QD (5 DAYS IN MONTH)
     Route: 048
     Dates: start: 20210405

REACTIONS (41)
  - Red blood cell count abnormal [Recovering/Resolving]
  - Diabetes mellitus [Unknown]
  - Blood potassium increased [Unknown]
  - Transfusion [Unknown]
  - COVID-19 pneumonia [Recovering/Resolving]
  - Leukaemia [Unknown]
  - Tooth extraction [Unknown]
  - Haematochezia [Unknown]
  - Gingival bleeding [Unknown]
  - Haemoglobin decreased [Recovering/Resolving]
  - Furuncle [Recovered/Resolved]
  - Ageusia [Unknown]
  - Palpitations [Unknown]
  - Taste disorder [Recovering/Resolving]
  - Pruritus [Unknown]
  - Disease progression [Unknown]
  - Hypoaesthesia oral [Recovering/Resolving]
  - Lip dry [Recovering/Resolving]
  - Mastication disorder [Not Recovered/Not Resolved]
  - Malaise [Unknown]
  - Gingival abscess [Not Recovered/Not Resolved]
  - Speech disorder [Unknown]
  - Malocclusion [Unknown]
  - Teeth brittle [Unknown]
  - Loose tooth [Unknown]
  - Bone disorder [Unknown]
  - Biopsy [Unknown]
  - Fluid replacement [Unknown]
  - Furuncle [Unknown]
  - Gingival swelling [Recovering/Resolving]
  - Gingival pain [Not Recovered/Not Resolved]
  - Weight decreased [Recovered/Resolved]
  - Contusion [Unknown]
  - Oral pain [Unknown]
  - Insomnia [Unknown]
  - Swelling face [Unknown]
  - Rash macular [Unknown]
  - Diarrhoea [Recovering/Resolving]
  - Diarrhoea [Not Recovered/Not Resolved]
  - Fatigue [Unknown]
  - Epistaxis [Unknown]

NARRATIVE: CASE EVENT DATE: 20210401
